FAERS Safety Report 18184439 (Version 2)
Quarter: 2020Q3

REPORT INFORMATION
  Report Type: Report from Study
  Country: None (occurrence: US)
  Receive Date: 20200824
  Receipt Date: 20200930
  Transmission Date: 20201103
  Serious: Yes (Disabling)
  Sender: FDA-Public Use
  Company Number: US-ABBVIE-20K-163-3458909-00

PATIENT
  Age: 61 Year
  Sex: Female

DRUGS (2)
  1. HUMIRA [Suspect]
     Active Substance: ADALIMUMAB
     Indication: RHEUMATOID ARTHRITIS
  2. HUMIRA [Suspect]
     Active Substance: ADALIMUMAB
     Indication: ANKYLOSING SPONDYLITIS
     Dosage: CITRATE FREE
     Route: 058

REACTIONS (27)
  - Insomnia [Unknown]
  - Chest pain [Unknown]
  - Head banging [Unknown]
  - Arthralgia [Unknown]
  - Drug intolerance [Unknown]
  - Arthralgia [Unknown]
  - Skin atrophy [Unknown]
  - Neuropathy peripheral [Unknown]
  - Pustular psoriasis [Not Recovered/Not Resolved]
  - Nerve compression [Not Recovered/Not Resolved]
  - Feeling abnormal [Unknown]
  - Contusion [Unknown]
  - Eye pain [Unknown]
  - Headache [Unknown]
  - Neuralgia [Not Recovered/Not Resolved]
  - Deafness [Unknown]
  - Eczema [Not Recovered/Not Resolved]
  - Fall [Unknown]
  - Gait disturbance [Recovered/Resolved]
  - Gait disturbance [Unknown]
  - Fatigue [Unknown]
  - Anxiety [Unknown]
  - Musculoskeletal stiffness [Unknown]
  - Nerve compression [Unknown]
  - Lower limb fracture [Unknown]
  - Muscle spasms [Unknown]
  - Malaise [Unknown]

NARRATIVE: CASE EVENT DATE: 2019
